FAERS Safety Report 6261766-1 (Version None)
Quarter: 2009Q3

REPORT INFORMATION
  Report Type: 
  Country: None (occurrence: None)
  Receive Date: 20090702
  Receipt Date: 20090313
  Transmission Date: 20100115
  Serious: No
  Sender: FDA-Public Use
  Company Number: 1000005199

PATIENT
  Age: 65 Year
  Sex: Male

DRUGS (7)
  1. BYSTOLIC [Suspect]
     Indication: HYPERTENSION
     Dosage: 5  MG (5  MG,1 IN 1 D),ORAL
     Route: 048
     Dates: start: 20090201
  2. LANTUS [Concomitant]
  3. NOVOLOG [Concomitant]
  4. LEVOTHYROXINE SODIUM [Concomitant]
  5. VYTORIN [Concomitant]
  6. STEO BI-FLEX [Concomitant]
  7. MULTI-VITAMIN [Concomitant]

REACTIONS (2)
  - PALPITATIONS [None]
  - TINNITUS [None]
